FAERS Safety Report 10049503 (Version 1)
Quarter: 2014Q2

REPORT INFORMATION
  Report Type: Spontaneous
  Country: US (occurrence: US)
  Receive Date: 20140401
  Receipt Date: 20140401
  Transmission Date: 20141212
  Serious: No
  Sender: FDA-Public Use
  Company Number: US-009507513-1403USA012613

PATIENT
  Sex: Male

DRUGS (2)
  1. REMERON [Suspect]
     Dosage: 15 MG, ONCE DAILY AT BEDTIME
     Route: 048
     Dates: start: 200911
  2. ZETIA [Suspect]
     Dosage: UNK
     Route: 048

REACTIONS (2)
  - Blood creatine phosphokinase increased [Not Recovered/Not Resolved]
  - Muscle contractions involuntary [Not Recovered/Not Resolved]
